FAERS Safety Report 8487013-8 (Version None)
Quarter: 2012Q3

REPORT INFORMATION
  Report Type: 
  Country: None (occurrence: None)
  Receive Date: 20120704
  Receipt Date: 20120629
  Transmission Date: 20120928
  Serious: Yes (Other)
  Sender: FDA-Public Use
  Company Number: PHEH2012US012997

PATIENT
  Sex: Male

DRUGS (4)
  1. DIOVAN HCT [Suspect]
     Dosage: 320/25MG, ONCE A DAY
     Dates: start: 19980101
  2. METFORMIN HCL [Concomitant]
     Dosage: UNK UKN, UNK
  3. SYNTHROID [Concomitant]
     Dosage: UNK UKN, UNK
  4. LIPITOR [Concomitant]
     Dosage: UNK UKN, UNK

REACTIONS (1)
  - DIABETES MELLITUS [None]
